FAERS Safety Report 10102427 (Version 2)
Quarter: 2014Q2

REPORT INFORMATION
  Report Type: Other
  Country: US (occurrence: US)
  Receive Date: 20140424
  Receipt Date: 20140628
  Transmission Date: 20141212
  Serious: Yes (Hospitalization, Other)
  Sender: FDA-Public Use
  Company Number: US-GSKPPD-2014GSK000306

PATIENT
  Age: 44 Year
  Sex: Female
  Weight: 132.57 kg

DRUGS (9)
  1. AVANDIA [Suspect]
     Indication: DIABETES MELLITUS
     Route: 048
     Dates: start: 20020902, end: 20021024
  2. LASIX [Concomitant]
  3. PLAVIX [Concomitant]
  4. TOPROL [Concomitant]
  5. LISINOPRIL [Concomitant]
  6. AMIODARONE [Concomitant]
     Route: 048
  7. METOPROLOL [Concomitant]
     Route: 048
  8. IMDUR [Concomitant]
     Route: 048
  9. DILTIAZEM [Concomitant]
     Route: 048

REACTIONS (1)
  - Myocardial infarction [Recovered/Resolved]
